FAERS Safety Report 7584085-X (Version None)
Quarter: 2011Q2

REPORT INFORMATION
  Report Type: 
  Country: None (occurrence: None)
  Receive Date: 20110630
  Receipt Date: 20110627
  Transmission Date: 20111010
  Serious: Yes (Hospitalization, Other)
  Sender: FDA-Public Use
  Company Number: US-MERCK-1103USA00998

PATIENT
  Age: 63 Year
  Sex: Female

DRUGS (2)
  1. [THERAPY UNSPECIFIED] [Concomitant]
     Route: 065
  2. FOSAMAX [Suspect]
     Indication: OSTEOPOROSIS
     Route: 048
     Dates: start: 20030101, end: 20050101

REACTIONS (15)
  - BRONCHITIS [None]
  - BLOOD CHOLESTEROL INCREASED [None]
  - BONE DISORDER [None]
  - FISTULA DISCHARGE [None]
  - IMPAIRED HEALING [None]
  - ORAL INFECTION [None]
  - HIP FRACTURE [None]
  - ABSCESS [None]
  - TOOTH DISORDER [None]
  - DEMENTIA [None]
  - RHEUMATOID ARTHRITIS [None]
  - CONCUSSION [None]
  - OSTEONECROSIS OF JAW [None]
  - FRACTURE [None]
  - DEPRESSION [None]
